FAERS Safety Report 10917640 (Version 1)
Quarter: 2015Q1

REPORT INFORMATION
  Report Type: Spontaneous
  Country: US (occurrence: None)
  Receive Date: 20150312
  Receipt Date: 20150312
  Transmission Date: 20150721
  Serious: No
  Sender: FDA-Public Use
  Company Number: None

PATIENT
  Age: 78 Year
  Sex: Male
  Weight: 65.77 kg

DRUGS (13)
  1. IMBRUVICA [Suspect]
     Active Substance: IBRUTINIB
     Indication: MANTLE CELL LYMPHOMA
     Dosage: STRENGTH:  140 MG, QUANTITY: 4, FREQUENCY: 1/DAY, ROUTE: BY MOUTH
     Route: 048
     Dates: start: 20140523
  2. FINASTRIDE [Concomitant]
     Active Substance: FINASTERIDE
  3. FLOMAX (TAMSULOSIN) [Concomitant]
  4. WELLBUTRIN [Concomitant]
     Active Substance: BUPROPION HYDROCHLORIDE
  5. MELATONIN [Concomitant]
     Active Substance: MELATONIN
  6. ATORVASTATIN [Concomitant]
     Active Substance: ATORVASTATIN
  7. CALCIUM, MAG, BIAC [Concomitant]
  8. TILDNEL [Concomitant]
  9. NEXIUM (OMEPRAZOLE) [Concomitant]
  10. AMBIAN (ZOLPIDEM TARTRATE) [Concomitant]
  11. CENTRUM [Concomitant]
     Active Substance: VITAMINS
  12. ATENOLOL. [Concomitant]
     Active Substance: ATENOLOL
  13. ASPIRIN. [Concomitant]
     Active Substance: ASPIRIN

REACTIONS (3)
  - Hair disorder [None]
  - Onychoclasis [None]
  - Nail growth abnormal [None]

NARRATIVE: CASE EVENT DATE: 20140610
